FAERS Safety Report 7062342-3 (Version None)
Quarter: 2010Q4

REPORT INFORMATION
  Report Type: 
  Country: None (occurrence: None)
  Receive Date: 20101026
  Receipt Date: 20101020
  Transmission Date: 20110411
  Serious: Yes (Other)
  Sender: FDA-Public Use
  Company Number: FR-ABBOTT-10P-056-0680183-00

PATIENT
  Age: 26 Year
  Sex: Female

DRUGS (14)
  1. DEPAKENE [Suspect]
     Indication: EPILEPSY
     Route: 048
     Dates: start: 20100911
  2. DEPAKENE [Suspect]
     Route: 048
     Dates: end: 20100401
  3. PLAQUENIL [Suspect]
     Indication: NEUROPSYCHIATRIC LUPUS
     Route: 048
  4. CORTANCYL [Suspect]
     Indication: NEUROPSYCHIATRIC LUPUS
     Route: 048
     Dates: end: 20100811
  5. CORTANCYL [Suspect]
     Route: 048
     Dates: start: 20100911
  6. LOVENOX [Suspect]
     Indication: PROPHYLAXIS
     Route: 058
     Dates: start: 20100907
  7. KARDEGIC [Suspect]
     Indication: PRE-ECLAMPSIA
     Route: 048
     Dates: start: 20100901, end: 20100901
  8. TRANDATE [Suspect]
     Indication: PRE-ECLAMPSIA
     Dates: start: 20100901, end: 20100901
  9. LOXEN [Suspect]
     Indication: PRE-ECLAMPSIA
     Dates: start: 20100901
  10. ENDOXAN [Suspect]
     Indication: NEUROPSYCHIATRIC LUPUS
     Route: 048
     Dates: start: 20100908
  11. TAMSULOSIN HCL [Concomitant]
     Indication: PRODUCT USED FOR UNKNOWN INDICATION
     Dates: end: 20100512
  12. ESOMEPRAZOLE [Concomitant]
     Indication: PRODUCT USED FOR UNKNOWN INDICATION
     Dates: end: 20100512
  13. CELL CEPT [Concomitant]
     Indication: PRODUCT USED FOR UNKNOWN INDICATION
     Dates: end: 20100512
  14. SOLUPRED [Concomitant]
     Indication: PRODUCT USED FOR UNKNOWN INDICATION
     Dates: start: 20100811, end: 20100911

REACTIONS (1)
  - INTRA-UTERINE DEATH [None]
